FAERS Safety Report 7747101-8 (Version None)
Quarter: 2011Q3

REPORT INFORMATION
  Report Type: 
  Country: None (occurrence: None)
  Receive Date: 20110913
  Receipt Date: 20110906
  Transmission Date: 20111222
  Serious: Yes (Hospitalization)
  Sender: FDA-Public Use
  Company Number: FR-PFIZER INC-2011207870

PATIENT
  Age: 34 Year
  Sex: Male
  Weight: 62 kg

DRUGS (4)
  1. VFEND [Suspect]
     Indication: SCEDOSPORIUM INFECTION
     Dosage: 266 MG, 3X/DAY
     Route: 042
     Dates: start: 20021001, end: 20050101
  2. VFEND [Suspect]
     Dosage: 800 MG DAILY (200MG IN THE MORNING, 400MG AT NOON AND 200MG IN THE EVENING)
     Dates: start: 20060101
  3. POSACONAZOLE [Concomitant]
     Indication: SCEDOSPORIUM INFECTION
     Dosage: UNK
     Dates: start: 20050501, end: 20060101
  4. CASPOFUNGIN [Concomitant]
     Indication: SCEDOSPORIUM INFECTION
     Dosage: UNK
     Dates: start: 20050501, end: 20060101

REACTIONS (2)
  - PRECANCEROUS SKIN LESION [None]
  - ACTINIC KERATOSIS [None]
